FAERS Safety Report 5757244-6 (Version None)
Quarter: 2008Q2

REPORT INFORMATION
  Report Type: 
  Country: None (occurrence: None)
  Receive Date: 20080507
  Receipt Date: 20071102
  Transmission Date: 20081010
  Serious: Yes (Hospitalization)
  Sender: FDA-Public Use
  Company Number: 239423K07USA

PATIENT
  Age: 52 Year
  Sex: Female

DRUGS (5)
  1. REBIF [Suspect]
     Indication: MULTIPLE SCLEROSIS
     Dosage: 44 MCG, 3 IN 1 WEEKS, SUBCUTANEOUS
     Route: 058
     Dates: start: 20051025
  2. METFORMIN HCL [Concomitant]
  3. EYE DROPS (ALL OTHER THERAPEUTIC PRODUCTS) [Concomitant]
  4. CORTISONE (CORTISONE/00014601/) [Concomitant]
  5. DARVOCET [Concomitant]

REACTIONS (11)
  - ABDOMINAL PAIN [None]
  - CHEST DISCOMFORT [None]
  - DISEASE PROGRESSION [None]
  - HYPOAESTHESIA [None]
  - INJECTION SITE DISCOLOURATION [None]
  - INJECTION SITE ERYTHEMA [None]
  - INJECTION SITE PAIN [None]
  - INJECTION SITE REACTION [None]
  - MULTIPLE SCLEROSIS RELAPSE [None]
  - MUSCLE SPASTICITY [None]
  - MUSCULOSKELETAL STIFFNESS [None]
